FAERS Safety Report 5658487-2 (Version None)
Quarter: 2008Q1

REPORT INFORMATION
  Report Type: 
  Country: None (occurrence: None)
  Receive Date: 20080310
  Receipt Date: 20070216
  Transmission Date: 20080703
  Serious: No
  Sender: FDA-Public Use
  Company Number: US-BAYER-200710527BCC

PATIENT
  Sex: Male
  Weight: 70 kg

DRUGS (12)
  1. ALEVE [Suspect]
     Indication: POST-TRAUMATIC PAIN
     Route: 048
  2. NIASPAN [Concomitant]
  3. ARICEPT [Concomitant]
  4. NEXIUM [Concomitant]
  5. CRESTOR [Concomitant]
  6. PLAVIX [Concomitant]
  7. SERTRALINE [Concomitant]
  8. FEOSOL [Concomitant]
  9. NILANDRON [Concomitant]
  10. BAYER 81 MG LOW DOSE [Concomitant]
  11. TRUSOPT [Concomitant]
  12. FML FORTE [Concomitant]

REACTIONS (2)
  - ARTHRALGIA [None]
  - PAIN [None]
